FAERS Safety Report 4650330-3 (Version None)
Quarter: 2005Q2

REPORT INFORMATION
  Report Type: 
  Country: None (occurrence: None)
  Receive Date: 20050429
  Receipt Date: 20050414
  Transmission Date: 20051028
  Serious: Yes (Hospitalization, Other)
  Sender: FDA-Public Use
  Company Number: 231442K05USA

PATIENT
  Sex: Female

DRUGS (6)
  1. REBIF [Suspect]
     Indication: MULTIPLE SCLEROSIS
  2. AMBIEN [Concomitant]
  3. CELEXA [Concomitant]
  4. AGGRENOX [Concomitant]
  5. ALLEGRA [Concomitant]
  6. PREVACID [Concomitant]

REACTIONS (3)
  - CEREBROVASCULAR ACCIDENT [None]
  - GASTRITIS [None]
  - HEPATITIS [None]
